FAERS Safety Report 9052404 (Version 1)
Quarter: 2013Q1

REPORT INFORMATION
  Report Type: Spontaneous
  Country: BO (occurrence: BO)
  Receive Date: 20130207
  Receipt Date: 20130207
  Transmission Date: 20140127
  Serious: Yes (Other)
  Sender: FDA-Public Use
  Company Number: PHHY2012BO106621

PATIENT
  Sex: Male

DRUGS (1)
  1. GLIVEC [Suspect]
     Indication: CHRONIC MYELOID LEUKAEMIA
     Dosage: 400 MG, DAILY
     Route: 048
     Dates: start: 201204

REACTIONS (7)
  - Oral herpes [Recovering/Resolving]
  - Haemoglobinuria [Recovering/Resolving]
  - Immunosuppression [Unknown]
  - Haematuria [Recovering/Resolving]
  - Haemorrhage [Recovered/Resolved]
  - Thrombocytopenia [Unknown]
  - Anaemia [Unknown]
